FAERS Safety Report 6056010-4 (Version None)
Quarter: 2009Q1

REPORT INFORMATION
  Report Type: 
  Country: None (occurrence: None)
  Receive Date: 20090128
  Receipt Date: 20090120
  Transmission Date: 20090719
  Serious: Yes (Hospitalization)
  Sender: FDA-Public Use
  Company Number: JP-BAXTER-2009BH001107

PATIENT
  Age: 78 Year
  Sex: Male

DRUGS (27)
  1. ENDOXAN BAXTER [Suspect]
     Indication: LYMPHOMA
     Route: 041
     Dates: start: 20081109, end: 20081109
  2. LASTET [Suspect]
     Indication: LYMPHOMA
     Route: 041
     Dates: end: 20081109
  3. OXINORM [Suspect]
     Indication: CANCER PAIN
     Route: 048
     Dates: start: 20081106, end: 20081109
  4. OXINORM [Suspect]
     Route: 048
     Dates: start: 20081111, end: 20081112
  5. OXINORM [Suspect]
     Route: 048
     Dates: start: 20081113, end: 20081113
  6. OXINORM [Suspect]
     Route: 048
     Dates: start: 20081116, end: 20081116
  7. OXINORM [Suspect]
     Route: 048
     Dates: start: 20081123, end: 20081123
  8. OXINORM [Suspect]
     Route: 048
     Dates: start: 20081114, end: 20081114
  9. OXYCONTIN [Suspect]
     Indication: CANCER PAIN
     Route: 048
  10. PREDONINE [Suspect]
     Indication: LYMPHOMA
     Route: 065
  11. ONCOVIN [Suspect]
     Indication: LYMPHOMA
     Route: 041
     Dates: end: 20081109
  12. ADRIACIN [Suspect]
     Indication: LYMPHOMA
     Route: 041
     Dates: end: 20081109
  13. ACYCLOVIR SODIUM [Suspect]
     Indication: HERPES ZOSTER
     Route: 041
     Dates: start: 20081117, end: 20081124
  14. VALSARTAN [Concomitant]
     Indication: DRUG USE FOR UNKNOWN INDICATION
     Route: 048
  15. PRAVASTATIN SODIUM [Concomitant]
     Indication: DRUG USE FOR UNKNOWN INDICATION
     Route: 048
  16. FAMOTIDINE [Concomitant]
     Indication: DRUG USE FOR UNKNOWN INDICATION
     Route: 048
  17. IRSOGLADINE MALEATE [Concomitant]
     Indication: DRUG USE FOR UNKNOWN INDICATION
     Route: 048
  18. CYANOCOBALAMIN [Concomitant]
     Indication: DRUG USE FOR UNKNOWN INDICATION
     Route: 048
  19. MAGNESIUM OXIDE [Concomitant]
     Indication: DRUG USE FOR UNKNOWN INDICATION
     Route: 048
  20. TELEMINSOFT [Concomitant]
     Indication: DRUG USE FOR UNKNOWN INDICATION
     Route: 065
  21. CALONAL [Concomitant]
     Indication: CANCER PAIN
     Route: 048
     Dates: start: 20081112
  22. ARASENA A [Concomitant]
     Indication: HERPES ZOSTER
     Route: 065
     Dates: start: 20081117
  23. LOXOPROFEN SODIUM [Concomitant]
     Indication: CANCER PAIN
     Route: 065
  24. GRANISETRON HCL [Concomitant]
     Indication: LYMPHOMA
     Route: 041
  25. MEYLON [Concomitant]
     Indication: LYMPHOMA
     Route: 042
  26. MAXIPIME [Concomitant]
     Indication: DRUG USE FOR UNKNOWN INDICATION
     Route: 041
     Dates: start: 20081116, end: 20081123
  27. NEUTROGIN [Concomitant]
     Indication: DRUG USE FOR UNKNOWN INDICATION
     Route: 058
     Dates: start: 20081115, end: 20081122

REACTIONS (5)
  - BLOOD ALKALINE PHOSPHATASE INCREASED [None]
  - FEBRILE NEUTROPENIA [None]
  - GAMMA-GLUTAMYLTRANSFERASE INCREASED [None]
  - HERPES ZOSTER [None]
  - THROMBOCYTOPENIA [None]
